FAERS Safety Report 6614177-0 (Version None)
Quarter: 2010Q1

REPORT INFORMATION
  Report Type: 
  Country: None (occurrence: None)
  Receive Date: 20100304
  Receipt Date: 20091218
  Transmission Date: 20100710
  Serious: No
  Sender: FDA-Public Use
  Company Number: GB-PFIZER INC-2009315186

PATIENT
  Sex: Male
  Weight: 2.42 kg

DRUGS (5)
  1. NELFINAVIR MESILATE [Suspect]
     Dosage: UNK
     Route: 048
     Dates: start: 20051110
  2. ATAZANAVIR [Suspect]
     Indication: DRUG USE FOR UNKNOWN INDICATION
     Dosage: UNK
     Route: 048
     Dates: start: 20050628, end: 20051109
  3. RITONAVIR [Suspect]
     Indication: DRUG USE FOR UNKNOWN INDICATION
     Dosage: UNK
     Route: 048
     Dates: start: 20050628, end: 20051109
  4. TRUVADA [Suspect]
     Indication: DRUG USE FOR UNKNOWN INDICATION
     Dosage: UNK
     Route: 048
     Dates: start: 20050628, end: 20051109
  5. COMBIVIR [Suspect]
     Indication: DRUG USE FOR UNKNOWN INDICATION
     Dosage: UNK
     Route: 048
     Dates: start: 20051110

REACTIONS (1)
  - DRUG EXPOSURE DURING PREGNANCY [None]
